FAERS Safety Report 14855896 (Version 1)
Quarter: 2018Q2

REPORT INFORMATION
  Report Type: Spontaneous
  Country: GB (occurrence: GB)
  Receive Date: 20180507
  Receipt Date: 20180507
  Transmission Date: 20180711
  Serious: Yes (Other)
  Sender: FDA-Public Use
  Company Number: PHHY2018GB003441

PATIENT
  Age: 3 Year
  Sex: Female
  Weight: 14.6 kg

DRUGS (1)
  1. AMOXICILLIN. [Suspect]
     Active Substance: AMOXICILLIN
     Indication: EAR INFECTION
     Dosage: SPOON
     Route: 065

REACTIONS (5)
  - Pyrexia [Recovered/Resolved]
  - Joint swelling [Recovering/Resolving]
  - Henoch-Schonlein purpura [Recovering/Resolving]
  - Eye swelling [Recovered/Resolved]
  - Pruritus [Recovered/Resolved]

NARRATIVE: CASE EVENT DATE: 20171213
